FAERS Safety Report 9121122 (Version 1)
Quarter: 2013Q1

REPORT INFORMATION
  Report Type: Spontaneous
  Country: CO (occurrence: CO)
  Receive Date: 20130226
  Receipt Date: 20130226
  Transmission Date: 20140127
  Serious: Yes (Other)
  Sender: FDA-Public Use
  Company Number: CO-AMGEN-COLSP2013012966

PATIENT
  Age: 74 Year
  Sex: Male

DRUGS (5)
  1. ENBREL [Suspect]
     Indication: PSORIATIC ARTHROPATHY
     Dosage: 50 MG, WEEKLY
     Route: 058
     Dates: start: 201201, end: 201301
  2. LOSARTAN [Concomitant]
     Indication: PULMONARY HYPERTENSION
     Dosage: 40 MG, 1X/DAY
     Route: 048
     Dates: start: 2010
  3. HYDROCHLOROTHIAZIDE [Concomitant]
     Indication: FLUID IMBALANCE
     Dosage: UNK
     Route: 048
     Dates: start: 2010
  4. THEOPHYLLINE [Concomitant]
     Indication: PULMONARY HYPERTENSION
     Dosage: UNK
     Route: 048
     Dates: start: 2010
  5. LEVOTHYROXINE [Concomitant]
     Indication: HYPOTHYROIDISM
     Dosage: UNK
     Route: 048
     Dates: start: 2010

REACTIONS (5)
  - Drug ineffective [Unknown]
  - Pain [Recovered/Resolved]
  - Skin burning sensation [Recovered/Resolved]
  - Latent tuberculosis [Unknown]
  - Psoriasis [Recovered/Resolved]
